FAERS Safety Report 7142847-7 (Version None)
Quarter: 2010Q4

REPORT INFORMATION
  Report Type: 
  Country: None (occurrence: None)
  Receive Date: 20101207
  Receipt Date: 20101203
  Transmission Date: 20110411
  Serious: Yes (Other)
  Sender: FDA-Public Use
  Company Number: GB-BRISTOL-MYERS SQUIBB COMPANY-15349905

PATIENT
  Age: 29 Year
  Sex: Female

DRUGS (7)
  1. ARIPIPRAZOLE [Suspect]
     Indication: BIPOLAR DISORDER
     Route: 048
  2. CLOZARIL [Suspect]
     Indication: SCHIZOPHRENIA
     Dosage: DOSE REDUCED TO 375 MG
     Route: 048
     Dates: start: 20100729
  3. CLOZARIL [Suspect]
     Indication: BIPOLAR DISORDER
     Dosage: DOSE REDUCED TO 375 MG
     Route: 048
     Dates: start: 20100729
  4. DIAZEPAM [Suspect]
  5. CONCERTA [Concomitant]
     Indication: ATTENTION DEFICIT/HYPERACTIVITY DISORDER
  6. ESCITALOPRAM [Concomitant]
     Indication: DEPRESSED MOOD
  7. LITHIUM CARBONATE [Concomitant]
     Indication: BIPOLAR DISORDER
     Route: 048

REACTIONS (3)
  - FALL [None]
  - MYOCLONUS [None]
  - URINARY INCONTINENCE [None]
